FAERS Safety Report 9983940 (Version 2)
Quarter: 2014Q1

REPORT INFORMATION
  Report Type: Report from Study
  Country: PR (occurrence: PR)
  Receive Date: 20140307
  Receipt Date: 20140307
  Transmission Date: 20141002
  Serious: Yes (Other)
  Sender: FDA-Public Use
  Company Number: PR-ABBVIE-13P-131-1159681-00

PATIENT
  Sex: Male
  Weight: 59.02 kg

DRUGS (9)
  1. HUMIRA [Suspect]
     Indication: CROHN^S DISEASE
     Route: 058
     Dates: start: 2012
  2. ASACOL [Concomitant]
     Indication: CROHN^S DISEASE
     Route: 048
  3. PREDNISONE [Concomitant]
     Indication: CROHN^S DISEASE
     Route: 048
  4. MELOXICAM [Concomitant]
     Indication: OSTEONECROSIS
     Route: 048
  5. FOSAMAX [Concomitant]
     Indication: OSTEONECROSIS
     Route: 048
  6. PEPCID [Concomitant]
     Indication: DYSPEPSIA
     Route: 048
  7. BENTYL [Concomitant]
     Indication: FLATULENCE
     Route: 048
  8. MULTIVITAMIN [Concomitant]
     Indication: VITAMIN SUPPLEMENTATION
     Route: 048
  9. FULVIC ACID [Concomitant]
     Indication: SUPPLEMENTATION THERAPY
     Route: 048

REACTIONS (3)
  - Crohn^s disease [Unknown]
  - Headache [Recovered/Resolved]
  - Abdominal pain [Recovered/Resolved]
